FAERS Safety Report 4728214-1 (Version None)
Quarter: 2005Q3

REPORT INFORMATION
  Report Type: 
  Country: None (occurrence: None)
  Receive Date: 20050728
  Receipt Date: 20050728
  Transmission Date: 20060218
  Serious: Yes (Other)
  Sender: FDA-Public Use
  Company Number: None

PATIENT
  Age: 53 Year
  Sex: Male
  Weight: 72.5755 kg

DRUGS (1)
  1. NIASPAN [Suspect]
     Indication: BLOOD CHOLESTEROL INCREASED
     Dosage: 500MG   TWICE DAILY  ORAL
     Route: 048
     Dates: start: 20050215, end: 20050401

REACTIONS (5)
  - ARTHRALGIA [None]
  - FLUSHING [None]
  - JOINT STIFFNESS [None]
  - POLYMYALGIA RHEUMATICA [None]
  - VASCULITIS [None]
